FAERS Safety Report 5244820-2 (Version None)
Quarter: 2007Q1

REPORT INFORMATION
  Report Type: 
  Country: None (occurrence: None)
  Receive Date: 20070216
  Receipt Date: 20070206
  Transmission Date: 20070707
  Serious: Yes (Hospitalization)
  Sender: FDA-Public Use
  Company Number: FRP07000062

PATIENT
  Age: 77 Year
  Sex: Female

DRUGS (3)
  1. ACTONEL [Suspect]
     Dosage: 35 MG, 1/WEEK, ORAL
     Route: 048
     Dates: end: 20070108
  2. EQUANIL [Suspect]
     Dosage: 800 MG, DAILY, ORAL
     Dates: end: 20070108
  3. NOVATREX/00113801/(METHOTREXATE) [Suspect]
     Dosage: 7.5 ,G. 1/WEEK, ORAL
     Route: 048
     Dates: end: 20070104

REACTIONS (2)
  - GENERAL PHYSICAL HEALTH DETERIORATION [None]
  - PANCYTOPENIA [None]
